FAERS Safety Report 26202236 (Version 1)
Quarter: 2025Q4

REPORT INFORMATION
  Report Type: Spontaneous
  Country: US (occurrence: US)
  Receive Date: 20251226
  Receipt Date: 20251226
  Transmission Date: 20260117
  Serious: No
  Sender: Kenvue
  Company Number: US-KENVUE-20251208677

PATIENT
  Sex: Female

DRUGS (2)
  1. WOMENS ROGAINE [Suspect]
     Active Substance: MINOXIDIL
     Indication: Alopecia
     Dosage: UNK UNK, ONCE A DAY (HALF OF A CAPFUL I USE IT ONCE A DAY N THE EVENING)
     Route: 065
     Dates: start: 2025
  2. WOMENS ROGAINE [Suspect]
     Active Substance: MINOXIDIL
     Dosage: USING AT LEAST FOR 10 YEARS
     Route: 065

REACTIONS (1)
  - Hair disorder [Not Recovered/Not Resolved]

NARRATIVE: CASE EVENT DATE: 20250101
